FAERS Safety Report 6315621-9 (Version None)
Quarter: 2009Q3

REPORT INFORMATION
  Report Type: 
  Country: None (occurrence: None)
  Receive Date: 20090819
  Receipt Date: 20090810
  Transmission Date: 20100115
  Serious: Yes (Other)
  Sender: FDA-Public Use
  Company Number: US-AMGEN-QUU357583

PATIENT
  Sex: Female
  Weight: 49 kg

DRUGS (3)
  1. ENBREL [Suspect]
     Indication: RHEUMATOID ARTHRITIS
     Route: 058
     Dates: start: 20070601
  2. PLAQUENIL [Concomitant]
  3. PLAQUENIL [Concomitant]

REACTIONS (2)
  - BILIARY CIRRHOSIS PRIMARY [None]
  - CATARACT [None]
